FAERS Safety Report 7610149-8 (Version None)
Quarter: 2011Q3

REPORT INFORMATION
  Report Type: 
  Country: None (occurrence: None)
  Receive Date: 20110715
  Receipt Date: 20110706
  Transmission Date: 20111222
  Serious: No
  Sender: FDA-Public Use
  Company Number: US-BIOGENIDEC-2011BI025130

PATIENT
  Sex: Female

DRUGS (3)
  1. AVONEX [Concomitant]
     Route: 030
  2. TYSABRI [Suspect]
     Indication: MULTIPLE SCLEROSIS
     Route: 042
     Dates: start: 20100326
  3. AVONEX [Concomitant]
     Indication: MULTIPLE SCLEROSIS
     Route: 030
     Dates: start: 20100201

REACTIONS (3)
  - TEMPERATURE INTOLERANCE [None]
  - STRESS [None]
  - MUSCULAR WEAKNESS [None]
